FAERS Safety Report 19177807 (Version 1)
Quarter: 2021Q2

REPORT INFORMATION
  Report Type: Spontaneous
  Country: US (occurrence: US)
  Receive Date: 20210426
  Receipt Date: 20210426
  Transmission Date: 20210717
  Serious: No
  Sender: FDA-Public Use
  Company Number: US-BAUSCH-BL-2021-011131

PATIENT
  Age: 76 Year
  Sex: Female

DRUGS (2)
  1. LOTEMAX [Concomitant]
     Active Substance: LOTEPREDNOL ETABONATE
     Indication: POSTOPERATIVE CARE
     Route: 047
     Dates: start: 202009
  2. LOTEMAX [Suspect]
     Active Substance: LOTEPREDNOL ETABONATE
     Indication: POSTOPERATIVE CARE
     Route: 047
     Dates: start: 202009, end: 202103

REACTIONS (5)
  - Visual impairment [Unknown]
  - Product dose omission issue [Unknown]
  - Product physical consistency issue [Unknown]
  - Product use complaint [Unknown]
  - Vision blurred [Unknown]
